FAERS Safety Report 7754284-2 (Version None)
Quarter: 2011Q3

REPORT INFORMATION
  Report Type: 
  Country: None (occurrence: None)
  Receive Date: 20110915
  Receipt Date: 20110912
  Transmission Date: 20111222
  Serious: Yes (Hospitalization, Other)
  Sender: FDA-Public Use
  Company Number: US-ELI_LILLY_AND_COMPANY-US201104002771

PATIENT
  Sex: Male
  Weight: 108.84 kg

DRUGS (14)
  1. JANUVIA [Concomitant]
  2. ACTOS [Concomitant]
  3. VALSARTAN [Concomitant]
  4. GLIMEPIRIDE [Concomitant]
  5. DIOVAN [Concomitant]
  6. METFORMIN HYDROCHLORIDE [Concomitant]
  7. BYETTA [Suspect]
     Dosage: UNK
     Route: 058
     Dates: start: 20061004
  8. ZOLOFT [Concomitant]
  9. BYETTA [Suspect]
     Dosage: 5 UG, BID
     Route: 058
  10. AMARYL [Concomitant]
  11. BUPROPION HCL [Concomitant]
  12. LISINOPRIL                              /USA/ [Concomitant]
  13. OXYCODONE HCL [Concomitant]
  14. ASPIRIN [Concomitant]

REACTIONS (1)
  - PANCREATITIS ACUTE [None]
